FAERS Safety Report 26217911 (Version 1)
Quarter: 2025Q4

REPORT INFORMATION
  Report Type: Spontaneous
  Country: US (occurrence: US)
  Receive Date: 20251231
  Receipt Date: 20251231
  Transmission Date: 20260119
  Serious: Yes (Hospitalization, Other)
  Sender: TEVA
  Company Number: US-TEVA-VS-3408211

PATIENT
  Age: 65 Year
  Sex: Male

DRUGS (3)
  1. NALTREXONE [Suspect]
     Active Substance: NALTREXONE
     Indication: Alcohol use disorder
     Dosage: EXTENDED-RELEASE
     Route: 065
  2. METHADONE [Concomitant]
     Active Substance: METHADONE HYDROCHLORIDE
     Indication: Drug withdrawal maintenance therapy
     Route: 065
  3. DEXMEDETOMIDINE [Suspect]
     Active Substance: DEXMEDETOMIDINE
     Indication: Product used for unknown indication
     Route: 065

REACTIONS (6)
  - Drug withdrawal syndrome [Unknown]
  - Torsade de pointes [Unknown]
  - Hypertensive urgency [Unknown]
  - Discomfort [Unknown]
  - Agitation [Unknown]
  - Bradycardia [Unknown]
